FAERS Safety Report 7970201-4 (Version None)
Quarter: 2011Q4

REPORT INFORMATION
  Report Type: 
  Country: None (occurrence: None)
  Receive Date: 20111212
  Receipt Date: 20111202
  Transmission Date: 20120403
  Serious: Yes (Hospitalization)
  Sender: FDA-Public Use
  Company Number: US-US-EMD SERONO, INC.-7096728

PATIENT
  Sex: Female

DRUGS (2)
  1. REBIF [Suspect]
     Indication: MULTIPLE SCLEROSIS
     Route: 058
     Dates: start: 20110919, end: 20111116
  2. REBIF [Suspect]
     Route: 058
     Dates: start: 20110919

REACTIONS (8)
  - VERTIGO [None]
  - NECK PAIN [None]
  - HYPERTENSION [None]
  - EYE DISORDER [None]
  - MULTIPLE SCLEROSIS [None]
  - HEADACHE [None]
  - INJECTION SITE PAIN [None]
  - BALANCE DISORDER [None]
